FAERS Safety Report 25066382 (Version 1)
Quarter: 2025Q1

REPORT INFORMATION
  Report Type: Spontaneous
  Country: AT (occurrence: AT)
  Receive Date: 20250312
  Receipt Date: 20250312
  Transmission Date: 20250409
  Serious: Yes (Other)
  Sender: ASTELLAS
  Company Number: AT-ASTELLAS-2025-AER-013462

PATIENT
  Sex: Female

DRUGS (1)
  1. VEOZAH [Suspect]
     Active Substance: FEZOLINETANT
     Indication: Product used for unknown indication
     Route: 065

REACTIONS (2)
  - Polyneuropathy [Unknown]
  - Condition aggravated [Unknown]
